FAERS Safety Report 6338432-7 (Version None)
Quarter: 2009Q3

REPORT INFORMATION
  Report Type: 
  Country: None (occurrence: None)
  Receive Date: 20090901
  Receipt Date: 20090817
  Transmission Date: 20100115
  Serious: Yes (Hospitalization, Disabling)
  Sender: FDA-Public Use
  Company Number: 2009AL001789

PATIENT
  Age: 63 Year
  Sex: Male

DRUGS (5)
  1. DIGOXIN [Suspect]
     Dosage: PO
     Route: 048
     Dates: start: 20050101, end: 20080301
  2. COUMADIN [Concomitant]
  3. DOCUSATE [Concomitant]
  4. IRON [Concomitant]
  5. ASCORBIC ACID [Concomitant]

REACTIONS (16)
  - ABDOMINAL PAIN [None]
  - ABDOMINAL PAIN LOWER [None]
  - ANAEMIA POSTOPERATIVE [None]
  - ATAXIA [None]
  - ATRIAL FIBRILLATION [None]
  - DIABETES MELLITUS [None]
  - DIARRHOEA [None]
  - ECONOMIC PROBLEM [None]
  - HYPERTENSION [None]
  - ILL-DEFINED DISORDER [None]
  - MOVEMENT DISORDER [None]
  - MULTIPLE INJURIES [None]
  - NAUSEA [None]
  - OSTEOARTHRITIS [None]
  - SURGERY [None]
  - VOMITING [None]
